FAERS Safety Report 26206704 (Version 1)
Quarter: 2025Q4

REPORT INFORMATION
  Report Type: Report from Study
  Country: US (occurrence: US)
  Receive Date: 20251229
  Receipt Date: 20251229
  Transmission Date: 20260118
  Serious: No
  Sender: DECIPHERA PHARMACEUTICALS
  Company Number: US-DECIPHERA PHARMACEUTICALS LLC-2025US001551

PATIENT
  Age: 38 Year
  Sex: Female

DRUGS (1)
  1. ROMVIMZA [Suspect]
     Active Substance: VIMSELTINIB
     Indication: Synovitis
     Dosage: 30 MILLIGRAM, TWICE WEEKLY (72 HOURS APART)
     Route: 061
     Dates: start: 20251020

REACTIONS (4)
  - Abdominal discomfort [Unknown]
  - Skin tightness [Unknown]
  - Dry skin [Unknown]
  - Pruritus [Unknown]

NARRATIVE: CASE EVENT DATE: 20250101
